FAERS Safety Report 10373837 (Version 1)
Quarter: 2014Q3

REPORT INFORMATION
  Report Type: Spontaneous
  Country: US (occurrence: US)
  Receive Date: 20140809
  Receipt Date: 20140809
  Transmission Date: 20150326
  Serious: No
  Sender: FDA-Public Use
  Company Number: US-B.I. PHARMACEUTICALS,INC./RIDGEFIELD-2014-BI-36286BP

PATIENT
  Sex: Female

DRUGS (1)
  1. MOBIC [Suspect]
     Active Substance: MELOXICAM
     Indication: ANALGESIC THERAPY
     Route: 048
     Dates: start: 2002

REACTIONS (3)
  - Gastrointestinal disorder [Recovered/Resolved]
  - Off label use [Not Recovered/Not Resolved]
  - Drug effect decreased [Recovered/Resolved]

NARRATIVE: CASE EVENT DATE: 2002
